FAERS Safety Report 9460030 (Version 1)
Quarter: 2013Q3

REPORT INFORMATION
  Report Type: Spontaneous
  Country: FR (occurrence: FR)
  Receive Date: 20130815
  Receipt Date: 20130815
  Transmission Date: 20140515
  Serious: Yes (Hospitalization)
  Sender: FDA-Public Use
  Company Number: FR-SANOFI-AVENTIS-2013SA080140

PATIENT
  Age: 69 Year
  Sex: Female

DRUGS (2)
  1. LASILIX [Suspect]
     Indication: CARDIAC FAILURE
     Dosage: STRENGTH: 60 MG
     Route: 048
     Dates: start: 20130703, end: 20130707
  2. GENTAMICIN [Suspect]
     Indication: INTERVERTEBRAL DISCITIS
     Route: 042
     Dates: start: 20130703, end: 20130704

REACTIONS (2)
  - Acute pulmonary oedema [Not Recovered/Not Resolved]
  - Renal failure acute [Not Recovered/Not Resolved]
